FAERS Safety Report 8151260-5 (Version None)
Quarter: 2012Q1

REPORT INFORMATION
  Report Type: 
  Country: None (occurrence: None)
  Receive Date: 20120220
  Receipt Date: 20120208
  Transmission Date: 20120608
  Serious: Yes (Hospitalization)
  Sender: FDA-Public Use
  Company Number: US-ELI_LILLY_AND_COMPANY-US201108006662

PATIENT
  Sex: Female

DRUGS (8)
  1. SIMVASTATIN [Concomitant]
  2. ALBUTEROL [Concomitant]
  3. METOPROLOL TARTRATE [Concomitant]
     Indication: BLOOD PRESSURE ABNORMAL
  4. FLONASE [Concomitant]
  5. ACETAMINOPHEN AND HYDROCODONE BITARTRATE [Concomitant]
     Dosage: UNK
  6. FORTEO [Suspect]
     Indication: OSTEOPOROSIS
     Dosage: 20 UG, QD
     Route: 065
     Dates: end: 20111101
  7. PLAVIX [Concomitant]
  8. ZYRTEC-D 12 HOUR [Concomitant]

REACTIONS (10)
  - MUSCULOSKELETAL DISCOMFORT [None]
  - PAIN [None]
  - ARTHRITIS [None]
  - ARTHRALGIA [None]
  - INTESTINAL OBSTRUCTION [None]
  - BACK PAIN [None]
  - PELVIC DISCOMFORT [None]
  - ABDOMINAL PAIN UPPER [None]
  - PAIN IN EXTREMITY [None]
  - OSTEOARTHRITIS [None]
